FAERS Safety Report 8152257 (Version 2)
Quarter: 2012Q4

REPORT INFORMATION
  Report Type: 
  Country: US (occurrence: US)
  Receive Date: 20110922
  Receipt Date: 20120912
  Transmission Date: 20130627
  Serious: Yes (Hospitalization)
  Sender: FDA-Public Use
  Company Number: US-ASTRAZENECA-2009UW00889

PATIENT
  Age: 49 Year
  Sex: Female
  Weight: 65.8 kg

DRUGS (7)
  1. SEROQUEL [Suspect]
     Indication: BIPOLAR DISORDER
     Route: 048
     Dates: start: 2004, end: 201008
  2. SEROQUEL [Suspect]
     Indication: BIPOLAR DISORDER
     Route: 048
     Dates: start: 201008
  3. SEROQUEL [Suspect]
     Indication: BIPOLAR DISORDER
     Route: 048
  4. SEROQUEL [Suspect]
     Indication: BIPOLAR DISORDER
     Route: 048
  5. ADDERALL [Concomitant]
  6. VISTARIL [Concomitant]
  7. IBUPROFEN [Concomitant]
     Indication: HEADACHE

REACTIONS (10)
  - Drug withdrawal syndrome [Unknown]
  - Migraine [Unknown]
  - Obsessive thoughts [Unknown]
  - Memory impairment [Unknown]
  - Hot flush [Unknown]
  - Chills [Unknown]
  - Vomiting [Unknown]
  - Tremor [Unknown]
  - Drug dose omission [Unknown]
  - Intentional drug misuse [Unknown]
